FAERS Safety Report 18522144 (Version 1)
Quarter: 2020Q4

REPORT INFORMATION
  Report Type: Other
  Country: US (occurrence: US)
  Receive Date: 20201119
  Receipt Date: 20201119
  Transmission Date: 20210114
  Serious: Yes (Death, Other)
  Sender: FDA-Public Use
  Company Number: US-MERZ PHARMACEUTICALS GMBH-20-04135

PATIENT

DRUGS (2)
  1. XEOMIN [Suspect]
     Active Substance: INCOBOTULINUMTOXINA
     Indication: SKIN COSMETIC PROCEDURE
  2. XEOMIN [Suspect]
     Active Substance: INCOBOTULINUMTOXINA
     Indication: NEUROMUSCULAR BLOCKING THERAPY

REACTIONS (17)
  - Injection site pain [Unknown]
  - Eyelid ptosis [Unknown]
  - Dyspnoea [Unknown]
  - Asthenia [Unknown]
  - Muscular weakness [Unknown]
  - Brow ptosis [Unknown]
  - Facial paresis [Unknown]
  - Drug ineffective [Unknown]
  - Therapeutic response decreased [Unknown]
  - Dysphagia [Unknown]
  - Influenza like illness [Unknown]
  - Botulism [Unknown]
  - Dry eye [Unknown]
  - Periorbital oedema [Unknown]
  - Off label use [Unknown]
  - Death [Fatal]
  - Headache [Unknown]
